FAERS Safety Report 7498636-7 (Version None)
Quarter: 2011Q2

REPORT INFORMATION
  Report Type: 
  Country: None (occurrence: None)
  Receive Date: 20110524
  Receipt Date: 20110509
  Transmission Date: 20111010
  Serious: Yes (Other)
  Sender: FDA-Public Use
  Company Number: CA-ELI_LILLY_AND_COMPANY-CA201105002099

PATIENT
  Sex: Male

DRUGS (4)
  1. DIVALPROEX SODIUM [Concomitant]
  2. ZYPREXA [Suspect]
     Dosage: 20 MG, EACH EVENING
  3. LORAZEPAM [Concomitant]
  4. ZYPREXA [Suspect]
     Dosage: 15 MG, EACH MORNING

REACTIONS (4)
  - DIABETIC NEPHROPATHY [None]
  - BLOOD TRIGLYCERIDES INCREASED [None]
  - DIABETES MELLITUS [None]
  - BLOOD CHOLESTEROL INCREASED [None]
